FAERS Safety Report 9557251 (Version 1)
Quarter: 2013Q3

REPORT INFORMATION
  Report Type: Spontaneous
  Country: US (occurrence: None)
  Receive Date: 20130726
  Receipt Date: 20130726
  Transmission Date: 20140515
  Serious: Yes (Hospitalization)
  Sender: FDA-Public Use
  Company Number: UTC-032992

PATIENT
  Age: 52 Year
  Sex: Female
  Weight: 48.18 kg

DRUGS (1)
  1. REMODULIN [Suspect]
     Indication: PULMONARY ARTERIAL HYPERTENSION
     Dosage: 34.56 UG/KG (0.024 UG/KG, 1 IN 1 MIN), INTRAVENOUS DRIP
     Dates: start: 20121112

REACTIONS (1)
  - Sepsis [None]
